FAERS Safety Report 24384338 (Version 1)
Quarter: 2024Q4

REPORT INFORMATION
  Report Type: Spontaneous
  Country: IE (occurrence: IE)
  Receive Date: 20241001
  Receipt Date: 20241001
  Transmission Date: 20250115
  Serious: Yes (Other)
  Sender: NOVARTIS
  Company Number: IE-002147023-NVSC2024IE193677

PATIENT
  Sex: Male
  Weight: 2.721 kg

DRUGS (5)
  1. LETROZOLE [Suspect]
     Active Substance: LETROZOLE
     Indication: Foetal exposure during pregnancy
     Dosage: MATERNAL EXPOSURE BEFORE PREGNANCY
     Route: 065
  2. PRASTERONE [Concomitant]
     Active Substance: PRASTERONE
     Indication: Androgen deficiency
     Dosage: 20 MG
     Route: 065
  3. PROGESTERONE [Concomitant]
     Active Substance: PROGESTERONE
     Indication: Abortion spontaneous
     Dosage: 400 MG
     Route: 065
  4. CLOMIPHENE [Concomitant]
     Active Substance: CLOMIPHENE
     Indication: Ovulation induction
     Dosage: 50 MG, QD
     Route: 065
  5. GONADOTROPHIN, CHORIONIC [Concomitant]
     Active Substance: GONADOTROPHIN, CHORIONIC
     Indication: Ovulation induction
     Dosage: 10000 IU
     Route: 065

REACTIONS (2)
  - Premature baby [Unknown]
  - Foetal exposure during pregnancy [Unknown]
